FAERS Safety Report 8993094 (Version 1)
Quarter: 2013Q1

REPORT INFORMATION
  Report Type: Report from Study
  Country: DE (occurrence: DE)
  Receive Date: 20130102
  Receipt Date: 20130102
  Transmission Date: 20140127
  Serious: Yes (Hospitalization)
  Sender: FDA-Public Use
  Company Number: DE-ROCHE-1173888

PATIENT
  Age: 50 Year
  Sex: Female

DRUGS (4)
  1. TRASTUZUMAB [Suspect]
     Indication: BREAST NEOPLASM
     Route: 042
     Dates: start: 20120905
  2. PACLITAXEL [Suspect]
     Indication: BREAST NEOPLASM
     Route: 042
     Dates: start: 20120905
  3. DOXORUBICIN [Suspect]
     Indication: BREAST NEOPLASM
     Route: 042
     Dates: start: 20120905
  4. LAPATINIB [Suspect]
     Indication: BREAST NEOPLASM
     Route: 048
     Dates: start: 20120905

REACTIONS (1)
  - Mucosal inflammation [Not Recovered/Not Resolved]
